FAERS Safety Report 18393506 (Version 1)
Quarter: 2020Q4

REPORT INFORMATION
  Report Type: Spontaneous
  Country: CH (occurrence: CH)
  Receive Date: 20201016
  Receipt Date: 20201016
  Transmission Date: 20210114
  Serious: Yes (Other)
  Sender: FDA-Public Use
  Company Number: CH-FRESENIUS KABI-FK202010792

PATIENT
  Age: 64 Year
  Sex: Male

DRUGS (16)
  1. CLAVULANATE POTASSIUM/AMOXICILLIN TRIHYDRATE [Concomitant]
     Active Substance: AMOXICILLIN\CLAVULANATE POTASSIUM
     Indication: IMPLANT SITE INFECTION
  2. CEFIDEROCOL. [Concomitant]
     Active Substance: CEFIDEROCOL
  3. COLISTIMETHATE (MANUFACTURER UNKNOWN) [Suspect]
     Active Substance: COLISTIMETHATE SODIUM
     Indication: ACINETOBACTER INFECTION
     Dosage: 4.5 MIO IU EVERY 12 HOURS
     Route: 065
  4. TIGECYCLINE. [Concomitant]
     Active Substance: TIGECYCLINE
     Indication: IMPLANT SITE INFECTION
  5. TIGECYCLINE. [Concomitant]
     Active Substance: TIGECYCLINE
     Indication: ACINETOBACTER INFECTION
  6. AZTREONAM. [Concomitant]
     Active Substance: AZTREONAM
     Indication: IMPLANT SITE INFECTION
  7. AZTREONAM. [Concomitant]
     Active Substance: AZTREONAM
     Indication: ACINETOBACTER INFECTION
  8. CEFTAZIDIME/AVIBACTAM [Concomitant]
     Active Substance: AVIBACTAM SODIUM\CEFTAZIDIME
     Indication: ACINETOBACTER INFECTION
  9. COLISTIMETHATE (MANUFACTURER UNKNOWN) [Suspect]
     Active Substance: COLISTIMETHATE SODIUM
     Indication: IMPLANT SITE INFECTION
  10. CLAVULANATE POTASSIUM/AMOXICILLIN TRIHYDRATE [Concomitant]
     Active Substance: AMOXICILLIN\CLAVULANATE POTASSIUM
     Indication: ACINETOBACTER INFECTION
  11. VANCOMYCIN [Concomitant]
     Active Substance: VANCOMYCIN
     Indication: IMPLANT SITE INFECTION
  12. VANCOMYCIN [Concomitant]
     Active Substance: VANCOMYCIN
     Indication: ACINETOBACTER INFECTION
  13. COLISTIMETHATE (MANUFACTURER UNKNOWN) [Suspect]
     Active Substance: COLISTIMETHATE SODIUM
     Indication: ANTIBIOTIC PROPHYLAXIS
  14. MEROPENEM. [Concomitant]
     Active Substance: MEROPENEM
     Indication: ACINETOBACTER INFECTION
  15. CEFTAZIDIME/AVIBACTAM [Concomitant]
     Active Substance: AVIBACTAM SODIUM\CEFTAZIDIME
     Indication: IMPLANT SITE INFECTION
  16. MEROPENEM. [Concomitant]
     Active Substance: MEROPENEM
     Indication: IMPLANT SITE INFECTION

REACTIONS (1)
  - Acute kidney injury [Recovered/Resolved]
